FAERS Safety Report 9637428 (Version 1)
Quarter: 2013Q4

REPORT INFORMATION
  Report Type: Report from Study
  Country: VE (occurrence: VE)
  Receive Date: 20131022
  Receipt Date: 20131022
  Transmission Date: 20140711
  Serious: Yes (Hospitalization)
  Sender: FDA-Public Use
  Company Number: PHHY2013VE115175

PATIENT
  Age: 55 Year
  Sex: Female

DRUGS (1)
  1. AFINITOR [Suspect]
     Indication: BREAST CANCER
     Dosage: 10 MG, DAILY
     Route: 048

REACTIONS (7)
  - Oral disorder [Recovered/Resolved]
  - Gastrointestinal disorder [Not Recovered/Not Resolved]
  - Colitis [Not Recovered/Not Resolved]
  - Diarrhoea [Unknown]
  - Diarrhoea haemorrhagic [Not Recovered/Not Resolved]
  - Vomiting [Not Recovered/Not Resolved]
  - Pyrexia [Not Recovered/Not Resolved]
